FAERS Safety Report 14171503 (Version 1)
Quarter: 2017Q4

REPORT INFORMATION
  Report Type: Spontaneous
  Country: FR (occurrence: FR)
  Receive Date: 20171108
  Receipt Date: 20171108
  Transmission Date: 20180321
  Serious: Yes (Hospitalization)
  Sender: FDA-Public Use
  Company Number: FR-009507513-1711FRA000928

PATIENT
  Age: 28 Year
  Sex: Female

DRUGS (3)
  1. DECAPEPTYL (TRIPTORELIN PAMOATE) [Suspect]
     Active Substance: TRIPTORELIN PAMOATE
     Indication: OOCYTE DONATION
     Dosage: 0.2 MG, ONCE
     Route: 058
     Dates: start: 20170826, end: 20170826
  2. ORGALUTRAN [Suspect]
     Active Substance: GANIRELIX ACETATE
     Indication: OOCYTE DONATION
     Dosage: CONCENTRATION: 0.25MG/0.5ML, 1 DOSAGE FORM, ONCE A DAY
     Route: 058
     Dates: start: 20170824, end: 20170826
  3. GONAL-F [Suspect]
     Active Substance: FOLLITROPIN
     Indication: OOCYTE DONATION
     Dosage: UNK
     Route: 058
     Dates: start: 20170818, end: 20170825

REACTIONS (1)
  - Peritoneal haemorrhage [Recovered/Resolved]

NARRATIVE: CASE EVENT DATE: 20170828
